FAERS Safety Report 7911697-3 (Version None)
Quarter: 2011Q4

REPORT INFORMATION
  Report Type: 
  Country: None (occurrence: None)
  Receive Date: 20111114
  Receipt Date: 20111107
  Transmission Date: 20120403
  Serious: Yes (Hospitalization)
  Sender: FDA-Public Use
  Company Number: GB-CUBIST-2011S1000428

PATIENT
  Sex: Male

DRUGS (1)
  1. CUBICIN [Suspect]
     Indication: CELLULITIS
     Dosage: DOSE UNIT:3
     Route: 042

REACTIONS (4)
  - VOMITING [None]
  - PERIORBITAL OEDEMA [None]
  - DIARRHOEA [None]
  - SWELLING FACE [None]
